FAERS Safety Report 9691364 (Version 8)
Quarter: 2014Q2

REPORT INFORMATION
  Report Type: Report from Study
  Country: CO (occurrence: CO)
  Receive Date: 20131115
  Receipt Date: 20140512
  Transmission Date: 20141212
  Serious: Yes (Death, Hospitalization)
  Sender: FDA-Public Use
  Company Number: CO-ROCHE-1256034

PATIENT
  Age: 73 Year
  Sex: Male
  Weight: 67.5 kg

DRUGS (29)
  1. RITUXIMAB [Suspect]
     Indication: DIFFUSE LARGE B-CELL LYMPHOMA
     Dosage: DAY 1, INTRAVENOUS RITUXIMAB ADMINISTERED ONLY ONCE.
     Route: 042
     Dates: start: 20130725
  2. RHUPH20/RITUXIMAB [Suspect]
     Indication: DIFFUSE LARGE B-CELL LYMPHOMA
     Dosage: DATE OF LAST DOSE PRIOR TO EVENT WAS 24/SEP/2013 AND 25/OCT/2013
     Route: 058
     Dates: start: 20130903
  3. CYCLOPHOSPHAMIDE [Suspect]
     Indication: DIFFUSE LARGE B-CELL LYMPHOMA
     Dosage: DATE OF LAST DOSE:25/OCT/2013
     Route: 065
     Dates: start: 20130725
  4. DOXORUBICIN [Suspect]
     Indication: DIFFUSE LARGE B-CELL LYMPHOMA
     Dosage: DATE OF LAST DOSE:25/OCT/2013
     Route: 065
     Dates: start: 20130725
  5. VINCRISTINE [Suspect]
     Indication: DIFFUSE LARGE B-CELL LYMPHOMA
     Dosage: DATE OF LAST DOSE:25/OCT/2013
     Route: 065
     Dates: start: 20130725
  6. PREDNISOLONE [Suspect]
     Indication: DIFFUSE LARGE B-CELL LYMPHOMA
     Dosage: DATE OF LAST DOSE:25/OCT/2013
     Route: 065
     Dates: start: 20130725
  7. NADROPARINE [Concomitant]
     Route: 058
     Dates: start: 20130813
  8. NADROPARINE [Concomitant]
     Route: 065
     Dates: start: 20130814
  9. NADROPARINE [Concomitant]
     Route: 058
     Dates: start: 20130714, end: 20130727
  10. HYDROMORPHONE [Concomitant]
     Dosage: 0.3 MG/C
     Route: 042
     Dates: start: 20130726, end: 20130731
  11. FLUCONAZOLE [Concomitant]
     Route: 048
     Dates: start: 20130718, end: 20130727
  12. TRAZODONE [Concomitant]
     Route: 065
     Dates: start: 20130727
  13. TRAZODONE [Concomitant]
     Route: 048
     Dates: start: 20130721, end: 20130730
  14. VERAPAMIL [Concomitant]
     Route: 065
     Dates: start: 20120101
  15. VERAPAMIL [Concomitant]
     Route: 065
     Dates: start: 20130721, end: 20130805
  16. DIPIRONE [Concomitant]
     Route: 042
     Dates: start: 20130814, end: 20130817
  17. QUETIAPINE [Concomitant]
     Route: 065
     Dates: start: 20130808
  18. QUETIAPINE [Concomitant]
     Route: 065
     Dates: start: 20130930, end: 20131027
  19. QUETIAPINE [Concomitant]
     Route: 065
     Dates: start: 20130812, end: 20130817
  20. QUETIAPINE [Concomitant]
     Route: 048
     Dates: start: 20130913, end: 20130917
  21. QUETIAPINE [Concomitant]
     Route: 048
     Dates: start: 20130918, end: 20130925
  22. INSULIN ^NOVO NORDISK^ MIXTARD HM 30/70 [Concomitant]
     Route: 065
     Dates: start: 20130810, end: 20130816
  23. RANITIDINE [Concomitant]
     Route: 065
     Dates: start: 20131003
  24. OMEPRAZOLE [Concomitant]
     Route: 065
     Dates: start: 20131018, end: 20131106
  25. OMEPRAZOLE [Concomitant]
     Route: 065
     Dates: start: 20130714, end: 20130723
  26. INSULIN GLARGINE [Concomitant]
     Dosage: 10 UN, AS NEEDED
     Route: 065
     Dates: start: 20131004
  27. IRON SUCROSE [Concomitant]
     Route: 042
     Dates: start: 20130717, end: 20130726
  28. ALLOPURINOL [Concomitant]
     Route: 048
     Dates: start: 20130721, end: 20130725
  29. LOSARTAN [Concomitant]
     Route: 048
     Dates: start: 20130714, end: 20130721

REACTIONS (4)
  - Septic shock [Fatal]
  - Pneumonia [Recovered/Resolved]
  - Septic shock [Recovered/Resolved]
  - Septic shock [Recovered/Resolved]
